FAERS Safety Report 7751290-9 (Version None)
Quarter: 2011Q3

REPORT INFORMATION
  Report Type: 
  Country: None (occurrence: None)
  Receive Date: 20110914
  Receipt Date: 20110628
  Transmission Date: 20111222
  Serious: Yes (Other)
  Sender: FDA-Public Use
  Company Number: PHHY2011NL57393

PATIENT
  Sex: Male

DRUGS (8)
  1. OXAZEPAM [Concomitant]
     Dosage: 20 MG X 3
  2. SANDOSTATIN LAR [Suspect]
     Dosage: 30 MG, ONCE PER 4 WEEKS
     Dates: start: 20110503
  3. SANDOSTATIN LAR [Suspect]
     Dosage: 30 MG, ONCE PER 4 WEEKS
     Dates: start: 20110531
  4. FRAXODI [Concomitant]
     Dosage: 0.8 UKN, QD
  5. FENTANYL [Concomitant]
     Dosage: 50 UG X1
  6. SANDOSTATIN LAR [Suspect]
     Indication: PANCREATIC NEUROENDOCRINE TUMOUR
     Dosage: 30 MG, ONCE PER 4 WEEKS
     Route: 030
     Dates: start: 20110404
  7. DOMPERIDONE [Concomitant]
     Dosage: 10 MG X4
  8. OXYCODONE HCL [Concomitant]
     Dosage: 10 MG X2-3

REACTIONS (3)
  - VOMITING [None]
  - ABDOMINAL PAIN [None]
  - NAUSEA [None]
